FAERS Safety Report 9344083 (Version 1)
Quarter: 2013Q2

REPORT INFORMATION
  Report Type: Spontaneous
  Country: US (occurrence: None)
  Receive Date: 20130610
  Receipt Date: 20130610
  Transmission Date: 20140414
  Serious: Yes (Hospitalization)
  Sender: FDA-Public Use
  Company Number: UTC-033529

PATIENT
  Age: 58 Year
  Sex: Female
  Weight: 38.6 kg

DRUGS (2)
  1. REMODULIN (10 MILLIGRAM/MILLILITERS, INJECTION FOR INFUSION) (TREPROSTINIL SODIUM) [Suspect]
     Indication: PULMONARY ARTERIAL HYPERTENSION
     Dosage: 0.074 UG/KG, 1 IN 1 MIN
     Route: 058
     Dates: start: 20100209
  2. ADCIRCA (TADALAFIL) [Concomitant]

REACTIONS (1)
  - Infusion site infection [None]
